FAERS Safety Report 4754030-0 (Version None)
Quarter: 2005Q3

REPORT INFORMATION
  Report Type: 
  Country: None (occurrence: None)
  Receive Date: 20050826
  Receipt Date: 20050314
  Transmission Date: 20060218
  Serious: Yes (Hospitalization, Other)
  Sender: FDA-Public Use
  Company Number: US-MERCK-0503USA02967

PATIENT
  Age: 50 Year
  Sex: Female
  Weight: 122 kg

DRUGS (7)
  1. VIOXX [Suspect]
     Indication: ARTHRITIS
     Route: 048
     Dates: start: 19990101, end: 20030101
  2. NEURONTIN [Concomitant]
     Indication: PAIN IN EXTREMITY
     Route: 065
     Dates: start: 20000101
  3. AMITRIPTYLINE HYDROCHLORIDE [Concomitant]
     Indication: DEPRESSION
     Route: 065
     Dates: start: 19950101
  4. LOPRESSOR [Concomitant]
     Indication: HYPERTENSION
     Route: 065
  5. ATIVAN [Concomitant]
     Route: 065
     Dates: start: 19970101, end: 20040101
  6. VALIUM [Concomitant]
     Indication: DEPRESSION
     Route: 065
     Dates: start: 19970101, end: 20040101
  7. ZANTAC [Concomitant]
     Route: 065

REACTIONS (9)
  - ATHEROSCLEROSIS [None]
  - BLOOD CHOLESTEROL INCREASED [None]
  - CHEST PAIN [None]
  - FIBROMYALGIA [None]
  - MYOCARDIAL INFARCTION [None]
  - OEDEMA PERIPHERAL [None]
  - SILENT MYOCARDIAL INFARCTION [None]
  - SLEEP APNOEA SYNDROME [None]
  - TRANSIENT ISCHAEMIC ATTACK [None]
